FAERS Safety Report 8803904 (Version 1)
Quarter: 2012Q4

REPORT INFORMATION
  Report Type: 
  Country: US (occurrence: US)
  Receive Date: 20120924
  Receipt Date: 20120924
  Transmission Date: 20130627
  Serious: No
  Sender: FDA-Public Use
  Company Number: US-PFIZER INC-2012233325

PATIENT
  Age: 67 Year
  Sex: Female
  Weight: 115 kg

DRUGS (5)
  1. LYRICA [Suspect]
     Indication: NEURALGIA
     Dosage: UNK
     Dates: start: 20120830, end: 2012
  2. AMLODIPINE [Concomitant]
     Indication: HYPERTENSION
     Dosage: 5 mg, daily
  3. TRAMADOL HYDROCHLORIDE [Concomitant]
     Indication: NEURALGIA
     Dosage: 1-2 tablets x 50mg, 3x/day
  4. NITROSTAT [Concomitant]
     Dosage: 0.4 mg, as needed
     Route: 060
  5. EDECRIN [Concomitant]
     Dosage: 50 mg, daily

REACTIONS (1)
  - Pain in jaw [Recovered/Resolved]
